FAERS Safety Report 11382846 (Version 1)
Quarter: 2015Q3

REPORT INFORMATION
  Report Type: Spontaneous
  Country: US (occurrence: US)
  Receive Date: 20150814
  Receipt Date: 20150814
  Transmission Date: 20151125
  Serious: No
  Sender: FDA-Public Use
  Company Number: US-BAYER-2015-399622

PATIENT
  Age: 75 Year
  Sex: Female
  Weight: 77.98 kg

DRUGS (3)
  1. ALEVE [Suspect]
     Active Substance: NAPROXEN SODIUM
  2. CARVEDILOL. [Concomitant]
     Active Substance: CARVEDILOL
  3. BAYER GENUINE ASPIRIN [Suspect]
     Active Substance: ASPIRIN

REACTIONS (5)
  - Erythema [Recovered/Resolved]
  - Abdominal discomfort [None]
  - Pruritus [Recovered/Resolved]
  - Peripheral swelling [Recovered/Resolved]
  - Product use issue [None]

NARRATIVE: CASE EVENT DATE: 20150810
